FAERS Safety Report 6229785-9 (Version None)
Quarter: 2009Q2

REPORT INFORMATION
  Report Type: 
  Country: None (occurrence: None)
  Receive Date: 20090615
  Receipt Date: 20090603
  Transmission Date: 20091009
  Serious: Yes (Other)
  Sender: FDA-Public Use
  Company Number: SE-PFIZER INC-2009221838

PATIENT

DRUGS (1)
  1. PREDNISOLONE STEAGLATE AND PREDNISOLONE [Suspect]
     Indication: MUSCULOSKELETAL PAIN

REACTIONS (2)
  - MANIA [None]
  - PSYCHOTIC DISORDER [None]
